FAERS Safety Report 10596563 (Version 7)
Quarter: 2015Q1

REPORT INFORMATION
  Report Type: Spontaneous
  Country: US (occurrence: US)
  Receive Date: 20141120
  Receipt Date: 20150317
  Transmission Date: 20150720
  Serious: Yes (Hospitalization, Other)
  Sender: FDA-Public Use
  Company Number: US-UNITED THERAPEUTICS-UNT-2014-010852

PATIENT
  Age: 47 Year
  Sex: Male
  Weight: 109.2 kg

DRUGS (5)
  1. REMODULIN [Suspect]
     Active Substance: TREPROSTINIL
     Indication: PULMONARY ARTERIAL HYPERTENSION
     Dosage: 0.02275 ?G/KG, CONTINUING
     Route: 041
     Dates: start: 20130215
  2. TRACLEER [Concomitant]
     Active Substance: BOSENTAN\BOSENTAN MONOHYDRATE
     Indication: PRODUCT USED FOR UNKNOWN INDICATION
  3. REMODULIN [Suspect]
     Active Substance: TREPROSTINIL
     Dosage: 0.028 ?G/KG, CONTINUING
     Route: 041
     Dates: start: 20130215
  4. REMODULIN [Suspect]
     Active Substance: TREPROSTINIL
     Dosage: 0.034 ?G/KG, CONTINUING
     Route: 041
     Dates: start: 20130215
  5. REMODULIN [Suspect]
     Active Substance: TREPROSTINIL
     Dosage: 0.01225 ?G/KG, CONTINUING
     Route: 041
     Dates: start: 20130215

REACTIONS (6)
  - Pulmonary arterial hypertension [Unknown]
  - Cardiac arrest [Unknown]
  - Dialysis [Unknown]
  - Pyrexia [Unknown]
  - Infection [Unknown]
  - Loss of consciousness [Unknown]

NARRATIVE: CASE EVENT DATE: 20141110
